FAERS Safety Report 17068122 (Version 1)
Quarter: 2019Q4

REPORT INFORMATION
  Report Type: Spontaneous
  Country: US (occurrence: US)
  Receive Date: 20191122
  Receipt Date: 20191122
  Transmission Date: 20200122
  Serious: No
  Sender: FDA-Public Use
  Company Number: US-EDENBRIDGE PHARMACEUTICALS, LLC-US-2019EDE000065

PATIENT

DRUGS (1)
  1. IVERMECTIN. [Suspect]
     Active Substance: IVERMECTIN
     Indication: INFECTION PARASITIC
     Dosage: UNK, ONCE A WEEK
     Route: 065

REACTIONS (2)
  - Drug ineffective [Unknown]
  - Unevaluable event [Unknown]
